FAERS Safety Report 7091940-6 (Version None)
Quarter: 2010Q4

REPORT INFORMATION
  Report Type: 
  Country: None (occurrence: None)
  Receive Date: 20101101
  Receipt Date: 20101020
  Transmission Date: 20110411
  Serious: Yes (Other)
  Sender: FDA-Public Use
  Company Number: AVE_01994_2010

PATIENT
  Sex: Female
  Weight: 90.9916 kg

DRUGS (10)
  1. CLONIDINE [Suspect]
     Indication: HYPERTENSION
     Dosage: (0.2 MG QD, VIA 1/WEEKLY PATCH TRANSDERMAL)
     Route: 062
     Dates: start: 20100912, end: 20100912
  2. SYNTHROID [Concomitant]
  3. TAKTURNA [Concomitant]
  4. VALIUM [Concomitant]
  5. ASA [Concomitant]
  6. BENADRYL [Concomitant]
  7. MULTI-VITAMINS [Concomitant]
  8. PROTONIX [Concomitant]
  9. FISH OIL [Concomitant]
  10. TWYNSTA [Concomitant]

REACTIONS (7)
  - APPLICATION SITE RASH [None]
  - BLOOD PRESSURE INCREASED [None]
  - DYSPNOEA [None]
  - EYE PRURITUS [None]
  - EYE SWELLING [None]
  - HEADACHE [None]
  - RASH [None]
